FAERS Safety Report 6445719-6 (Version None)
Quarter: 2009Q4

REPORT INFORMATION
  Report Type: 
  Country: None (occurrence: None)
  Receive Date: 20091118
  Receipt Date: 20091118
  Transmission Date: 20100525
  Serious: Yes (Other)
  Sender: FDA-Public Use
  Company Number: None

PATIENT
  Sex: Male
  Weight: 68.0396 kg

DRUGS (1)
  1. BUSPIRONE HCL [Suspect]
     Dosage: 1/2 TABLET 2X DAY 2 DAYS

REACTIONS (4)
  - HEADACHE [None]
  - MOOD ALTERED [None]
  - NECK PAIN [None]
  - PHOTOPHOBIA [None]
